FAERS Safety Report 22321055 (Version 1)
Quarter: 2023Q2

REPORT INFORMATION
  Report Type: Other
  Country: None (occurrence: IT)
  Receive Date: 20230515
  Receipt Date: 20230515
  Transmission Date: 20230721
  Serious: Yes (Hospitalization, Other)
  Sender: FDA-Public Use
  Company Number: IT-Misemer Pharmaceutical, Inc.-2141471

PATIENT
  Age: 51 Year
  Sex: Female
  Weight: 63.636 kg

DRUGS (1)
  1. KETOPROFEN [Suspect]
     Active Substance: KETOPROFEN

REACTIONS (1)
  - Toxic epidermal necrolysis [Recovered/Resolved with Sequelae]
